FAERS Safety Report 6695920-1 (Version None)
Quarter: 2010Q2

REPORT INFORMATION
  Report Type: 
  Country: None (occurrence: None)
  Receive Date: 20100407
  Receipt Date: 20090604
  Transmission Date: 20101027
  Serious: Yes (Hospitalization)
  Sender: FDA-Public Use
  Company Number: KV200900641

PATIENT
  Age: 58 Year
  Sex: Female

DRUGS (15)
  1. PROPAFENONE HYDROCHLORIDE [Suspect]
     Indication: DRUG USE FOR UNKNOWN INDICATION
     Dosage: 150 MG, TID, ORAL
     Route: 048
     Dates: start: 20070101, end: 20080101
  2. PROPAFENONE HCL [Suspect]
     Indication: DRUG USE FOR UNKNOWN INDICATION
     Dosage: 225 MG, TID, ORAL
     Route: 048
     Dates: start: 20080101, end: 20080801
  3. METFORMIN HCL [Concomitant]
  4. POTASSIUM CHLORIDE [Concomitant]
  5. CALCIUM (CALCIUM) [Concomitant]
  6. MAGNESIUM (MAGNESIUM) [Concomitant]
  7. ZINC (ZINC) [Concomitant]
  8. PROTONIX [Concomitant]
  9. VALIUM [Concomitant]
  10. SPIRONOLACTONE [Concomitant]
  11. LASIX [Concomitant]
  12. AMITRIPTYLINE HYDROCHLORIDE [Concomitant]
  13. COREG [Concomitant]
  14. COUMADIN [Concomitant]
  15. DEMEROL [Concomitant]

REACTIONS (1)
  - HEART RATE INCREASED [None]
